FAERS Safety Report 6075777-2 (Version None)
Quarter: 2009Q1

REPORT INFORMATION
  Report Type: 
  Country: None (occurrence: None)
  Receive Date: 20090209
  Receipt Date: 20090126
  Transmission Date: 20090719
  Serious: Yes (Life-Threatening)
  Sender: FDA-Public Use
  Company Number: GB-GDP-09405361

PATIENT
  Age: 48 Year
  Sex: Female

DRUGS (1)
  1. METRONIDAZOLE [Suspect]
     Dosage: UNKNOWN
     Dates: start: 20090115, end: 20090115

REACTIONS (1)
  - ANAPHYLACTIC REACTION [None]
